FAERS Safety Report 22687951 (Version 8)
Quarter: 2023Q4

REPORT INFORMATION
  Report Type: Spontaneous
  Country: US (occurrence: US)
  Receive Date: 20230710
  Receipt Date: 20231204
  Transmission Date: 20240109
  Serious: No
  Sender: FDA-Public Use
  Company Number: US-PFIZER INC-202300237446

PATIENT
  Age: 14 Year
  Sex: Male
  Weight: 63.5 kg

DRUGS (4)
  1. GENOTROPIN [Suspect]
     Active Substance: SOMATROPIN
     Indication: Growth hormone deficiency
     Dosage: 3.4 ML
  2. GENOTROPIN [Suspect]
     Active Substance: SOMATROPIN
     Dosage: 3.4 MG (6 DAYS PER WEEK)
  3. GENOTROPIN [Suspect]
     Active Substance: SOMATROPIN
     Dosage: 3.4 MG, DAILY
     Dates: start: 202306
  4. GENOTROPIN [Suspect]
     Active Substance: SOMATROPIN
     Dosage: 3.6 MG (6 DAYS A WEEK)
     Route: 058
     Dates: start: 202306

REACTIONS (5)
  - Incorrect dose administered by device [Unknown]
  - Drug dose omission by device [Unknown]
  - Device malfunction [Unknown]
  - Device information output issue [Unknown]
  - Device issue [Unknown]
